FAERS Safety Report 8091090-6 (Version None)
Quarter: 2012Q1

REPORT INFORMATION
  Report Type: 
  Country: None (occurrence: None)
  Receive Date: 20120129
  Receipt Date: 20111020
  Transmission Date: 20120608
  Serious: No
  Sender: FDA-Public Use
  Company Number: US-ABBOTT-11P-163-0867048-00

PATIENT
  Sex: Female

DRUGS (3)
  1. HUMIRA [Suspect]
     Indication: RHEUMATOID ARTHRITIS
     Dosage: HYSICIAN CHANGED HER DOSING SCHEDULE
     Route: 058
     Dates: start: 20110501, end: 20110929
  2. ORENCIA [Concomitant]
     Indication: ARTHRITIS
  3. PREDNISONE TAB [Concomitant]
     Indication: ARTHRITIS
     Dosage: 10 MG UP TO 40 MG AS NEEDED

REACTIONS (2)
  - DRUG INEFFECTIVE [None]
  - GLAUCOMA [None]
